FAERS Safety Report 12957234 (Version 1)
Quarter: 2016Q4

REPORT INFORMATION
  Report Type: Spontaneous
  Country: SG (occurrence: SG)
  Receive Date: 20161118
  Receipt Date: 20161118
  Transmission Date: 20170207
  Serious: Yes (Other)
  Sender: FDA-Public Use
  Company Number: SG-PFIZER INC-2016531801

PATIENT
  Age: 48 Year
  Sex: Male

DRUGS (2)
  1. CYCLOPHOSPHAMIDE. [Suspect]
     Active Substance: CYCLOPHOSPHAMIDE
     Indication: MICROSCOPIC POLYANGIITIS
     Dosage: 700 MG, (375 MG/M2), 3 SESSIONS
     Route: 042
  2. METHYLPREDNISOLONE SODIUM SUCCINATE. [Suspect]
     Active Substance: METHYLPREDNISOLONE SODIUM SUCCINATE
     Indication: MICROSCOPIC POLYANGIITIS
     Dosage: 500 MG, DAILY, (FOR 3 DOSES)
     Route: 042

REACTIONS (1)
  - Cytomegalovirus gastrointestinal infection [Recovered/Resolved]
